FAERS Safety Report 6868192-2 (Version None)
Quarter: 2010Q3

REPORT INFORMATION
  Report Type: 
  Country: None (occurrence: None)
  Receive Date: 20100722
  Receipt Date: 20100712
  Transmission Date: 20110219
  Serious: Yes (Hospitalization, Other)
  Sender: FDA-Public Use
  Company Number: US-ABBOTT-10P-163-0657121-00

PATIENT
  Sex: Female
  Weight: 90.346 kg

DRUGS (11)
  1. HUMIRA [Suspect]
     Indication: RHEUMATOID ARTHRITIS
     Dates: start: 20100101
  2. METHOTREXATE [Concomitant]
     Indication: RHEUMATOID ARTHRITIS
     Dosage: THURSDAY- 4 TABLETS AND FRIDAY- 4 TABLETS
     Dates: start: 20090401
  3. BENICAR HCT [Concomitant]
     Indication: HYPERTENSION
     Dosage: DAILY DOSE: 1- 20/12.5MG
     Route: 048
     Dates: start: 20070101
  4. AMBIEN CR [Concomitant]
     Indication: INSOMNIA
     Dosage: EVERY NIGHT
     Route: 048
  5. ALPRAZOLAM [Concomitant]
     Indication: ANXIETY
     Route: 048
  6. CYCLOBENZAPRINE HYDROCHLORIDE [Concomitant]
     Indication: INSOMNIA
     Dosage: AT BEDTIME AS NEEDED
  7. CYCLOBENZAPRINE HYDROCHLORIDE [Concomitant]
     Indication: FEELING OF RELAXATION
  8. NEXIUM [Concomitant]
     Indication: GASTROOESOPHAGEAL REFLUX DISEASE
     Route: 048
  9. FOLIC ACID [Concomitant]
     Indication: PRODUCT USED FOR UNKNOWN INDICATION
     Route: 048
  10. ZOLOFT [Concomitant]
     Indication: DEPRESSION
     Route: 048
  11. TRAMADOL [Concomitant]
     Indication: PAIN

REACTIONS (17)
  - DECREASED APPETITE [None]
  - DEVICE MALFUNCTION [None]
  - DIARRHOEA [None]
  - ENDOMETRIAL HYPERTROPHY [None]
  - FATIGUE [None]
  - HEART RATE DECREASED [None]
  - INCORRECT DOSE ADMINISTERED [None]
  - INCORRECT DRUG ADMINISTRATION RATE [None]
  - INJECTION SITE EXTRAVASATION [None]
  - INJECTION SITE PAPULE [None]
  - NAUSEA [None]
  - PAIN [None]
  - PAIN IN EXTREMITY [None]
  - PULMONARY EMBOLISM [None]
  - THROMBOPHLEBITIS SUPERFICIAL [None]
  - VASODILATATION [None]
  - VEIN PAIN [None]
